FAERS Safety Report 6029800-1 (Version None)
Quarter: 2009Q1

REPORT INFORMATION
  Report Type: 
  Country: None (occurrence: None)
  Receive Date: 20090106
  Receipt Date: 20090106
  Transmission Date: 20090719
  Serious: Yes (Other)
  Sender: FDA-Public Use
  Company Number: None

PATIENT
  Age: 18 Year
  Sex: Male
  Weight: 51.7101 kg

DRUGS (2)
  1. LEVETIRACETAM [Suspect]
     Indication: CONVULSION
     Dosage: 500 MG TAKE 2 BID PO
     Route: 048
     Dates: start: 20021128, end: 20090103
  2. LEVETIRACETAM [Suspect]
     Indication: CONVULSION
     Dosage: 250 MG TAKE 1 BID PO
     Route: 048
     Dates: start: 20021128, end: 20090103

REACTIONS (3)
  - CONVULSION [None]
  - DROP ATTACKS [None]
  - PRODUCT QUALITY ISSUE [None]
